FAERS Safety Report 8446839-7 (Version None)
Quarter: 2012Q2

REPORT INFORMATION
  Report Type: 
  Country: None (occurrence: None)
  Receive Date: 20120612
  Receipt Date: 20120612
  Transmission Date: 20120825
  Serious: Yes (Hospitalization, Other)
  Sender: FDA-Public Use
  Company Number: None

PATIENT
  Sex: Female

DRUGS (1)
  1. OCELLA, 3 MG,/0.03 MG [Suspect]
     Indication: CONTRACEPTION
     Dosage: 3 MG, DIALY, PO
     Route: 048

REACTIONS (2)
  - DEEP VEIN THROMBOSIS [None]
  - APPENDICITIS [None]
